FAERS Safety Report 21761151 (Version 3)
Quarter: 2023Q1

REPORT INFORMATION
  Report Type: Spontaneous
  Country: US (occurrence: US)
  Receive Date: 20221221
  Receipt Date: 20230206
  Transmission Date: 20230417
  Serious: Yes (Hospitalization, Other)
  Sender: FDA-Public Use
  Company Number: US-PFIZER INC-202201378288

PATIENT
  Age: 84 Year
  Sex: Female
  Weight: 58.957 kg

DRUGS (1)
  1. PAXLOVID [Suspect]
     Active Substance: NIRMATRELVIR\RITONAVIR
     Indication: COVID-19 treatment
     Dosage: UNK

REACTIONS (7)
  - Seizure [Recovering/Resolving]
  - Diarrhoea [Recovering/Resolving]
  - Dehydration [Recovering/Resolving]
  - Loss of consciousness [Recovering/Resolving]
  - Hypersomnia [Recovering/Resolving]
  - Confusional state [Recovering/Resolving]
  - Cerebral disorder [Recovering/Resolving]
